FAERS Safety Report 7559992-4 (Version None)
Quarter: 2011Q2

REPORT INFORMATION
  Report Type: 
  Country: None (occurrence: None)
  Receive Date: 20110621
  Receipt Date: 20110609
  Transmission Date: 20111010
  Serious: Yes (Other)
  Sender: FDA-Public Use
  Company Number: PHHY2011US51207

PATIENT
  Sex: Female

DRUGS (3)
  1. TOBI [Suspect]
     Indication: CYSTIC FIBROSIS
     Dosage: 300 MG, BID (28 DAYS ON AND 28 DAYS OFF)
  2. ZYVOX [Concomitant]
  3. PULMOZYME [Concomitant]

REACTIONS (3)
  - PNEUMONIA [None]
  - ERYTHEMA INFECTIOSUM [None]
  - DIZZINESS [None]
